FAERS Safety Report 13962644 (Version 1)
Quarter: 2017Q3

REPORT INFORMATION
  Report Type: Spontaneous
  Country: US (occurrence: US)
  Receive Date: 20170913
  Receipt Date: 20170913
  Transmission Date: 20171128
  Serious: No
  Sender: FDA-Public Use
  Company Number: US-ASTRAZENECA-2014SE16959

PATIENT
  Sex: Female

DRUGS (1)
  1. ZOMIG [Suspect]
     Active Substance: ZOLMITRIPTAN
     Indication: MIGRAINE
     Dosage: DOSE UNKNOWN
     Route: 045

REACTIONS (4)
  - Headache [Unknown]
  - Malaise [Unknown]
  - Impaired driving ability [Unknown]
  - Drug dose omission [Unknown]
